FAERS Safety Report 13412184 (Version 4)
Quarter: 2023Q4

REPORT INFORMATION
  Report Type: Spontaneous
  Country: US (occurrence: US)
  Receive Date: 20170406
  Receipt Date: 20231005
  Transmission Date: 20240110
  Serious: No
  Sender: FDA-Public Use
  Company Number: US-JNJFOC-20170314467

PATIENT
  Age: 15 Year
  Sex: Male

DRUGS (11)
  1. INVEGA [Suspect]
     Active Substance: PALIPERIDONE
     Indication: Bipolar disorder
     Dosage: DOSE: 3 MG AND 6 MG
     Route: 048
     Dates: start: 20130531, end: 20131007
  2. INVEGA [Suspect]
     Active Substance: PALIPERIDONE
     Indication: Autism spectrum disorder
     Route: 048
     Dates: start: 20131107
  3. RISPERDAL [Suspect]
     Active Substance: RISPERIDONE
     Indication: Product used for unknown indication
     Route: 048
     Dates: start: 20090218, end: 20130524
  4. RISPERDAL [Suspect]
     Active Substance: RISPERIDONE
     Indication: Bipolar disorder
     Route: 048
     Dates: end: 20130524
  5. RISPERDAL [Suspect]
     Active Substance: RISPERIDONE
     Indication: Autism spectrum disorder
  6. RISPERDAL M-TAB [Suspect]
     Active Substance: RISPERIDONE
     Indication: Bipolar disorder
     Route: 048
     Dates: start: 20090627
  7. RISPERDAL M-TAB [Suspect]
     Active Substance: RISPERIDONE
     Indication: Autism spectrum disorder
  8. RISPERDAL M-TAB [Suspect]
     Active Substance: RISPERIDONE
     Indication: Agitation
  9. SEROQUEL [Suspect]
     Active Substance: QUETIAPINE FUMARATE
     Indication: Bipolar disorder
     Route: 048
     Dates: start: 2009, end: 2017
  10. RISPERIDONE [Suspect]
     Active Substance: RISPERIDONE
     Indication: Bipolar disorder
     Dosage: VARYING DOSES OF 0.25, 0.5 MG, 1 MG, 2 MG, 3 MG, 4 MG
     Route: 048
     Dates: start: 20090218
  11. RISPERIDONE [Suspect]
     Active Substance: RISPERIDONE
     Indication: Autism spectrum disorder

REACTIONS (2)
  - Gynaecomastia [Unknown]
  - Emotional distress [Unknown]

NARRATIVE: CASE EVENT DATE: 20131009
